FAERS Safety Report 8277041-X (Version None)
Quarter: 2012Q2

REPORT INFORMATION
  Report Type: 
  Country: None (occurrence: None)
  Receive Date: 20120412
  Receipt Date: 20120329
  Transmission Date: 20120825
  Serious: Yes (Hospitalization)
  Sender: FDA-Public Use
  Company Number: FR-ROCHE-1013720

PATIENT
  Sex: Female
  Weight: 79 kg

DRUGS (1)
  1. VEMURAFENIB [Suspect]
     Indication: PRODUCT USED FOR UNKNOWN INDICATION
     Route: 065
     Dates: start: 20110912, end: 20111026

REACTIONS (2)
  - CARDIAC FAILURE [None]
  - EJECTION FRACTION DECREASED [None]
